FAERS Safety Report 5507207-0 (Version None)
Quarter: 2007Q4

REPORT INFORMATION
  Report Type: 
  Country: None (occurrence: None)
  Receive Date: 20071102
  Receipt Date: 20071023
  Transmission Date: 20080405
  Serious: Yes (Other)
  Sender: FDA-Public Use
  Company Number: 2007SP021551

PATIENT
  Age: 57 Year
  Sex: Female

DRUGS (2)
  1. INTEGRILIN [Suspect]
     Indication: DRUG USE FOR UNKNOWN INDICATION
  2. LOVENOX [Concomitant]

REACTIONS (2)
  - CATHETER THROMBOSIS [None]
  - MYOCARDIAL INFARCTION [None]
